FAERS Safety Report 8962130 (Version 1)
Quarter: 2012Q4

REPORT INFORMATION
  Report Type: Report from Study
  Country: ES (occurrence: ES)
  Receive Date: 20121212
  Receipt Date: 20121212
  Transmission Date: 20130627
  Serious: Yes (Hospitalization)
  Sender: FDA-Public Use
  Company Number: ES-GILEAD-2012-0065844

PATIENT
  Age: 54 Year
  Sex: Male

DRUGS (4)
  1. TENOFOVIR DISOPROXIL FUMARATE [Suspect]
     Indication: CHRONIC HEPATITIS B
     Dosage: 245 mg, QD
     Route: 048
     Dates: start: 20090420, end: 20121016
  2. METFORMINE [Concomitant]
     Indication: PRODUCT USED FOR UNKNOWN INDICATION
     Dosage: UNK
     Dates: start: 20110509
  3. GLIBENCLAMIDE [Concomitant]
     Indication: PRODUCT USED FOR UNKNOWN INDICATION
     Dosage: UNK
     Dates: start: 20090315
  4. PROPRANOLOL [Concomitant]
     Indication: PRODUCT USED FOR UNKNOWN INDICATION
     Dosage: UNK
     Dates: start: 20090715

REACTIONS (3)
  - Urosepsis [Recovered/Resolved]
  - Prostatitis [Recovered/Resolved]
  - Renal failure acute [Recovered/Resolved]
